FAERS Safety Report 21279698 (Version 1)
Quarter: 2022Q3

REPORT INFORMATION
  Report Type: Spontaneous
  Country: JP (occurrence: JP)
  Receive Date: 20220901
  Receipt Date: 20220901
  Transmission Date: 20221026
  Serious: Yes (Hospitalization)
  Sender: FDA-Public Use
  Company Number: JP-STRIDES ARCOLAB LIMITED-2022SP010816

PATIENT
  Age: 60 Year
  Sex: Male
  Weight: 62 kg

DRUGS (13)
  1. TACROLIMUS [Interacting]
     Active Substance: TACROLIMUS
     Indication: Prophylaxis against transplant rejection
     Dosage: 2 MILLIGRAM, QD
     Route: 048
  2. TACROLIMUS [Interacting]
     Active Substance: TACROLIMUS
     Dosage: 1.5 MILLIGRAM, QD, BEFORE INTRODUCING REMDESIVIR TO REACH DRUG CONCENTRATION 3.0NG/ML.
     Route: 065
  3. TACROLIMUS [Interacting]
     Active Substance: TACROLIMUS
     Dosage: 1 MILLIGRAM, (CONTROL RELEASED DOSE)
     Route: 065
  4. TACROLIMUS [Interacting]
     Active Substance: TACROLIMUS
     Dosage: 0.5 MILLIGRAM, QD
     Route: 065
  5. TACROLIMUS [Interacting]
     Active Substance: TACROLIMUS
     Dosage: 2 MILLIGRAM, QD, CONTROLLED RELEASED
     Route: 065
  6. EVEROLIMUS [Interacting]
     Active Substance: EVEROLIMUS
     Indication: Prophylaxis against transplant rejection
     Dosage: 0.5 MILLIGRAM, BID
     Route: 065
  7. EVEROLIMUS [Interacting]
     Active Substance: EVEROLIMUS
     Dosage: 0.5 MILLIGRAM, BID, REINTRODUCED
     Route: 065
  8. CASIRIVIMAB\IMDEVIMAB [Interacting]
     Active Substance: CASIRIVIMAB\IMDEVIMAB
     Indication: COVID-19 pneumonia
     Dosage: 1200 MILLIGRAM, SINGLE INJECTION
     Route: 065
  9. CASIRIVIMAB\IMDEVIMAB [Interacting]
     Active Substance: CASIRIVIMAB\IMDEVIMAB
     Indication: Pneumonia bacterial
  10. REMDESIVIR [Interacting]
     Active Substance: REMDESIVIR
     Indication: COVID-19 pneumonia
     Dosage: 200 MILLIGRAM, QD
     Route: 042
  11. REMDESIVIR [Interacting]
     Active Substance: REMDESIVIR
     Indication: Pneumonia bacterial
     Dosage: 100 MILLIGRAM, QD
     Route: 065
  12. METHYLPREDNISOLONE [Suspect]
     Active Substance: METHYLPREDNISOLONE
     Indication: Prophylaxis against transplant rejection
     Dosage: UNK
     Route: 065
  13. MIZORIBINE [Suspect]
     Active Substance: MIZORIBINE
     Indication: Prophylaxis against transplant rejection
     Dosage: UNK
     Route: 065

REACTIONS (4)
  - Drug interaction [Unknown]
  - Drug level increased [Unknown]
  - COVID-19 pneumonia [Recovered/Resolved]
  - Pneumonia bacterial [Unknown]
